FAERS Safety Report 24974958 (Version 1)
Quarter: 2025Q1

REPORT INFORMATION
  Report Type: Spontaneous
  Country: DE (occurrence: DE)
  Receive Date: 20250217
  Receipt Date: 20250217
  Transmission Date: 20250409
  Serious: No
  Sender: ASTELLAS
  Company Number: DE-ASTELLAS-2024-AER-019504

PATIENT
  Age: 6 Decade
  Sex: Female

DRUGS (1)
  1. VEOZAH [Suspect]
     Active Substance: FEZOLINETANT
     Indication: Product used for unknown indication
     Route: 050

REACTIONS (2)
  - Dizziness [Unknown]
  - Cardiovascular disorder [Unknown]
